FAERS Safety Report 8450385-4 (Version None)
Quarter: 2012Q2

REPORT INFORMATION
  Report Type: 
  Country: None (occurrence: None)
  Receive Date: 20120620
  Receipt Date: 20120620
  Transmission Date: 20120825
  Serious: Yes (Other)
  Sender: FDA-Public Use
  Company Number: FR-PFIZER INC-2011277865

PATIENT
  Age: 62 Year
  Sex: Male
  Weight: 55.5 kg

DRUGS (1)
  1. VFEND [Suspect]
     Indication: ASPERGILLOSIS
     Dosage: 200 MG, 2X/DAY
     Dates: start: 20111108

REACTIONS (13)
  - DECREASED APPETITE [None]
  - SKIN EXFOLIATION [None]
  - HAEMATOMA [None]
  - PHOTOSENSITIVITY REACTION [None]
  - GAMMA-GLUTAMYLTRANSFERASE INCREASED [None]
  - VISUAL IMPAIRMENT [None]
  - EYE BURNS [None]
  - THERMAL BURN [None]
  - DYSPNOEA [None]
  - ALOPECIA [None]
  - LIP DRY [None]
  - NAUSEA [None]
  - SKIN DISORDER [None]
